FAERS Safety Report 9169708 (Version 1)
Quarter: 2013Q1

REPORT INFORMATION
  Report Type: Spontaneous
  Country: NL (occurrence: NL)
  Receive Date: 20130318
  Receipt Date: 20130318
  Transmission Date: 20140127
  Serious: Yes (Hospitalization)
  Sender: FDA-Public Use
  Company Number: PHHY2013NL024996

PATIENT
  Sex: Male

DRUGS (7)
  1. MYCOPHENOLATE MOFETIL [Suspect]
     Indication: IMMUNOSUPPRESSION
     Dosage: 2 DF (100 MG)
  2. TACROLIMUS [Suspect]
     Indication: IMMUNOSUPPRESSION
     Dosage: 2 DF (7 MG)
  3. PREDNISOLONE [Suspect]
     Indication: IMMUNOSUPPRESSION
     Dosage: 1 DF (30 MG)
  4. PREDNISOLONE [Suspect]
     Dosage: 20 MG, UNK
  5. PREDNISOLONE [Suspect]
     Dosage: 10 MG, UNK
  6. RITUXIMAB [Suspect]
     Indication: IMMUNOSUPPRESSION
     Dosage: 375 MG/M2, UNK
  7. IMMUNOGLOBULINS [Concomitant]
     Dosage: 0.5 G/KG, UNK
     Route: 042

REACTIONS (7)
  - Progressive multifocal leukoencephalopathy [Recovering/Resolving]
  - Hypokinesia [Recovering/Resolving]
  - Hemiparesis [Recovering/Resolving]
  - Hypoaesthesia [Recovering/Resolving]
  - Gait disturbance [Recovering/Resolving]
  - JC virus infection [Recovering/Resolving]
  - Central nervous system lesion [Recovering/Resolving]
